FAERS Safety Report 24096877 (Version 1)
Quarter: 2024Q3

REPORT INFORMATION
  Report Type: Spontaneous
  Country: US (occurrence: US)
  Receive Date: 20240716
  Receipt Date: 20240716
  Transmission Date: 20241016
  Serious: No
  Sender: GRIFOLS
  Company Number: US-IGSA-BIG0025203

PATIENT
  Age: 62 Year
  Sex: Female

DRUGS (3)
  1. HUMAN IMMUNOGLOBULIN G [Suspect]
     Active Substance: HUMAN IMMUNOGLOBULIN G
     Indication: Platelet count decreased
     Dosage: UNK UNKNOWN, UNKNOWN
     Route: 042
  2. TAVALISSE [Concomitant]
     Active Substance: FOSTAMATINIB
     Indication: Haemolytic anaemia
     Dosage: 150 MILLIGRAM, BID
     Route: 048
     Dates: start: 20220526
  3. TAVALISSE [Concomitant]
     Active Substance: FOSTAMATINIB
     Indication: Off label use

REACTIONS (1)
  - Rhinorrhoea [Unknown]

NARRATIVE: CASE EVENT DATE: 20230701
